FAERS Safety Report 10342461 (Version 2)
Quarter: 2014Q3

REPORT INFORMATION
  Report Type: Spontaneous
  Country: US (occurrence: US)
  Receive Date: 20140725
  Receipt Date: 20140725
  Transmission Date: 20150326
  Serious: Yes (Hospitalization, Other)
  Sender: FDA-Public Use
  Company Number: US-009507513-2010SP039924

PATIENT
  Sex: Female
  Weight: 77.11 kg

DRUGS (1)
  1. NUVARING [Suspect]
     Active Substance: ETHINYL ESTRADIOL\ETONOGESTREL
     Indication: CONTRACEPTION
     Dosage: UNK
     Route: 067
     Dates: start: 20050330, end: 20060621

REACTIONS (7)
  - Deep vein thrombosis [Unknown]
  - Varicose vein [Unknown]
  - Depression [Unknown]
  - Post thrombotic syndrome [Unknown]
  - Thrombosis [Unknown]
  - Inappropriate schedule of drug administration [Unknown]
  - Influenza [Unknown]

NARRATIVE: CASE EVENT DATE: 2006
